FAERS Safety Report 7575278-6 (Version None)
Quarter: 2011Q2

REPORT INFORMATION
  Report Type: 
  Country: None (occurrence: None)
  Receive Date: 20110627
  Receipt Date: 20110623
  Transmission Date: 20111010
  Serious: Yes (Other)
  Sender: FDA-Public Use
  Company Number: JP-PFIZER INC-2011122548

PATIENT
  Age: 54 Year
  Sex: Female
  Weight: 78 kg

DRUGS (7)
  1. IRZAIM [Concomitant]
     Dosage: UNK
     Dates: start: 20110222
  2. BOUFUUTSUUSHOUSAN [Suspect]
     Indication: CONSTIPATION
     Dosage: UNK
     Route: 048
     Dates: start: 20100805, end: 20110526
  3. VARENICLINE TARTRATE [Suspect]
     Indication: SMOKING CESSATION THERAPY
     Dosage: 0.5 MG, 1X/DAY
     Route: 048
     Dates: start: 20110401, end: 20110403
  4. VARENICLINE TARTRATE [Suspect]
     Dosage: 2 MG, 1X/DAY
     Route: 048
     Dates: start: 20110408, end: 20110526
  5. VARENICLINE TARTRATE [Suspect]
     Dosage: 1 MG, 1X/DAY
     Route: 048
     Dates: start: 20110404, end: 20110407
  6. MUCOSOLVAN [Concomitant]
     Dosage: UNK
     Dates: start: 20110222
  7. CRESTOR [Suspect]
     Indication: HYPERLIPIDAEMIA
     Dosage: 2.5 MG, 1X/DAY
     Route: 048
     Dates: start: 20100805, end: 20110526

REACTIONS (1)
  - HEPATIC FUNCTION ABNORMAL [None]
